FAERS Safety Report 15036246 (Version 1)
Quarter: 2018Q2

REPORT INFORMATION
  Report Type: Spontaneous
  Country: DE (occurrence: DE)
  Receive Date: 20180620
  Receipt Date: 20180620
  Transmission Date: 20180711
  Serious: Yes (Life-Threatening)
  Sender: FDA-Public Use
  Company Number: DE-009507513-1806DEU005647

PATIENT
  Sex: Male

DRUGS (1)
  1. CELESTAMINE N [Suspect]
     Active Substance: BETAMETHASONE
     Indication: ANAPHYLACTIC SHOCK
     Dosage: UNK
     Route: 048

REACTIONS (2)
  - Product use complaint [Unknown]
  - Product use in unapproved indication [Unknown]
